FAERS Safety Report 7421365-2 (Version None)
Quarter: 2011Q2

REPORT INFORMATION
  Report Type: 
  Country: None (occurrence: None)
  Receive Date: 20110418
  Receipt Date: 20110407
  Transmission Date: 20111010
  Serious: Yes (Death, Other)
  Sender: FDA-Public Use
  Company Number: JP-BRISTOL-MYERS SQUIBB COMPANY-15625239

PATIENT
  Age: 87 Year
  Sex: Female

DRUGS (12)
  1. ASPIRIN [Concomitant]
     Indication: PROPHYLAXIS
     Dates: start: 20080630, end: 20110308
  2. GLYCORAN [Concomitant]
     Indication: DIABETES MELLITUS
     Dosage: 250MG:20FEB09-13AUG09(173D),500MG:14AUG09-20MAR10(210D),750MG:21MAR10-12JAN2011(297D)
     Dates: start: 20090220, end: 20110112
  3. HUMULIN N [Concomitant]
     Indication: DIABETES MELLITUS
     Dosage: 24IU:30JU08,14IU:11NO8-04DE08(23D),10IU:05DE08-05FE08(62D),6IU:06F09-12F09(6D),3IU:13F09-19F09(6D).
     Route: 058
     Dates: start: 20080630, end: 20090219
  4. AMARYL [Concomitant]
     Indication: DIABETES MELLITUS
     Dates: start: 20090213, end: 20100218
  5. METFORMIN HCL [Suspect]
     Indication: DIABETES MELLITUS
     Dates: start: 20110113, end: 20110203
  6. FAMOTIDINE [Concomitant]
     Indication: PROPHYLAXIS AGAINST GASTROINTESTINAL ULCER
     Dates: start: 20080630, end: 20110308
  7. GLYCYRON [Concomitant]
     Indication: LIVER DISORDER
     Dates: start: 20100205, end: 20110308
  8. POTASSIUM ASPARTATE [Concomitant]
     Indication: HYPOKALAEMIA
     Dosage: 1500MG:30JUN08-13JUL08,1000MG:14JUL08-12FEB09(218D),500MG:13FEB09-09SEP09(207D)
     Dates: start: 20080630, end: 20090909
  9. ASPIRIN [Concomitant]
     Indication: CEREBRAL INFARCTION
     Dates: start: 20080630, end: 20110308
  10. PRIMPERAN TAB [Concomitant]
     Indication: VOMITING
     Dates: start: 20090828, end: 20110308
  11. METGLUCO [Suspect]
     Indication: TYPE 2 DIABETES MELLITUS
     Dosage: INITIAL DOSE: 750MG/DAY; INCREASED TO 1000MG.
     Route: 048
     Dates: start: 20110204, end: 20110308
  12. PRIMPERAN TAB [Concomitant]
     Indication: NAUSEA
     Dates: start: 20090828, end: 20110308

REACTIONS (2)
  - INTESTINAL OBSTRUCTION [None]
  - LACTIC ACIDOSIS [None]
